FAERS Safety Report 9258391 (Version 1)
Quarter: 2013Q2

REPORT INFORMATION
  Report Type: Spontaneous
  Country: US (occurrence: US)
  Receive Date: 20130426
  Receipt Date: 20130426
  Transmission Date: 20140414
  Serious: Yes (Hospitalization)
  Sender: FDA-Public Use
  Company Number: US-BAYER-2013-051722

PATIENT
  Age: 22 Year
  Sex: Female
  Weight: 61.22 kg

DRUGS (10)
  1. YASMIN [Suspect]
  2. MULTIVITAMIN [Concomitant]
  3. CELEBREX [Concomitant]
  4. FERROUS SULFATE [Concomitant]
  5. FLEXERIL [Concomitant]
  6. LORTAB [Concomitant]
  7. LORAZEPAM [Concomitant]
  8. HYDROMORPHONE [Concomitant]
  9. ONDANSETRON [Concomitant]
  10. NSAID^S [Concomitant]

REACTIONS (2)
  - Pulmonary embolism [None]
  - Deep vein thrombosis [None]
